FAERS Safety Report 20513455 (Version 1)
Quarter: 2022Q1

REPORT INFORMATION
  Report Type: Spontaneous
  Country: US (occurrence: US)
  Receive Date: 20220224
  Receipt Date: 20220224
  Transmission Date: 20220424
  Serious: No
  Sender: FDA-Public Use
  Company Number: US-AMNEAL PHARMACEUTICALS-2021-AMRX-04054

PATIENT
  Age: 78 Year
  Sex: Male
  Weight: 63 kg

DRUGS (8)
  1. RYTARY [Suspect]
     Active Substance: CARBIDOPA\LEVODOPA
     Indication: Parkinson^s disease
     Dosage: 48.75/195MG, 1 CAPSULES, 3 /DAY
     Route: 048
     Dates: start: 202107, end: 2021
  2. RYTARY [Suspect]
     Active Substance: CARBIDOPA\LEVODOPA
     Dosage: 36.25/145MG, 1 CAPSULES, 3 /DAY
     Route: 048
     Dates: start: 2021, end: 20211003
  3. RYTARY [Suspect]
     Active Substance: CARBIDOPA\LEVODOPA
     Dosage: 36.25/145MG, 1 CAPSULES, 3 /DAY
     Route: 048
     Dates: start: 20210616, end: 202107
  4. ASPIRIN [Concomitant]
     Active Substance: ASPIRIN
     Indication: Product used for unknown indication
     Dosage: 81 MILLIGRAM, QD
     Route: 065
  5. ROBINUL [Concomitant]
     Active Substance: GLYCOPYRROLATE
     Indication: Drooling
     Dosage: 1 MILLIGRAM, QD
     Route: 065
  6. AMLODIPINE [Concomitant]
     Active Substance: AMLODIPINE BESYLATE
     Indication: Product used for unknown indication
     Dosage: UNK UNK, QD
     Route: 065
  7. DICLOFENAC [Concomitant]
     Active Substance: DICLOFENAC
     Indication: Myalgia
     Dosage: UNK
     Route: 065
  8. TICE BCG [Concomitant]
     Active Substance: BACILLUS CALMETTE-GUERIN SUBSTRAIN TICE LIVE ANTIGEN
     Indication: Immunisation
     Dosage: UNK
     Route: 065

REACTIONS (5)
  - Drug intolerance [Recovered/Resolved]
  - Abdominal pain upper [Recovered/Resolved]
  - Tremor [Not Recovered/Not Resolved]
  - Nausea [Recovered/Resolved]
  - Therapy cessation [Unknown]

NARRATIVE: CASE EVENT DATE: 20210701
